FAERS Safety Report 21745447 (Version 1)
Quarter: 2022Q4

REPORT INFORMATION
  Report Type: Spontaneous
  Country: US (occurrence: US)
  Receive Date: 20221219
  Receipt Date: 20221219
  Transmission Date: 20230112
  Serious: No
  Sender: FDA-Public Use
  Company Number: US-BRISTOL-MYERS SQUIBB COMPANY-2022-154603

PATIENT
  Age: 72 Year
  Sex: Male
  Weight: 95.25 kg

DRUGS (1)
  1. REVLIMID [Suspect]
     Active Substance: LENALIDOMIDE
     Indication: Plasma cell myeloma
     Dosage: FREQ: DAILY DAYS 1-14 EVERY 21 DAYS
     Route: 048
     Dates: start: 20221118

REACTIONS (3)
  - Nausea [Unknown]
  - Paraesthesia [Unknown]
  - Off label use [Unknown]
